FAERS Safety Report 6055035-2 (Version None)
Quarter: 2009Q1

REPORT INFORMATION
  Report Type: 
  Country: None (occurrence: None)
  Receive Date: 20090122
  Receipt Date: 20090108
  Transmission Date: 20090719
  Serious: Yes (Other)
  Sender: FDA-Public Use
  Company Number: 2009000087

PATIENT
  Age: 57 Year
  Sex: Female

DRUGS (1)
  1. TARCEVA [Suspect]
     Indication: SQUAMOUS CELL CARCINOMA
     Dosage: ORAL
     Route: 048

REACTIONS (2)
  - NO THERAPEUTIC RESPONSE [None]
  - PLEURAL EFFUSION [None]
